FAERS Safety Report 25048091 (Version 3)
Quarter: 2025Q3

REPORT INFORMATION
  Report Type: Report from Study
  Country: US (occurrence: US)
  Receive Date: 20250306
  Receipt Date: 20250813
  Transmission Date: 20251021
  Serious: Yes (Disabling, Other)
  Sender: ABBVIE
  Company Number: US-ABBVIE-6159448

PATIENT
  Age: 71 Year
  Sex: Female

DRUGS (1)
  1. HUMIRA [Suspect]
     Active Substance: ADALIMUMAB
     Indication: Uveitis
     Route: 058

REACTIONS (7)
  - Blindness [Unknown]
  - Visual impairment [Unknown]
  - Eye operation [Unknown]
  - Glaucoma [Unknown]
  - Ocular procedural complication [Unknown]
  - Post procedural complication [Unknown]
  - Astigmatism [Unknown]

NARRATIVE: CASE EVENT DATE: 20210401
